FAERS Safety Report 25163241 (Version 1)
Quarter: 2025Q2

REPORT INFORMATION
  Report Type: Spontaneous
  Country: US (occurrence: US)
  Receive Date: 20250404
  Receipt Date: 20250404
  Transmission Date: 20250716
  Serious: No
  Sender: SHIONOGI
  Company Number: US-shionogi-202500003644

PATIENT
  Age: 68 Year
  Sex: Female

DRUGS (1)
  1. CEFIDEROCOL [Suspect]
     Active Substance: CEFIDEROCOL
     Indication: Urinary tract infection
     Dates: start: 20241208, end: 20241213

REACTIONS (1)
  - Drug resistance [Unknown]
